FAERS Safety Report 6392797-9 (Version None)
Quarter: 2009Q4

REPORT INFORMATION
  Report Type: 
  Country: None (occurrence: None)
  Receive Date: 20091007
  Receipt Date: 20090819
  Transmission Date: 20100525
  Serious: No
  Sender: FDA-Public Use
  Company Number: US-ALLERGAN-0911611US

PATIENT
  Age: 38 Year
  Sex: Female

DRUGS (2)
  1. LATISSE [Suspect]
     Indication: GROWTH OF EYELASHES
     Dosage: UNK
     Route: 061
  2. LEVOXYL [Concomitant]
     Dosage: 15 MG, QD
     Route: 048

REACTIONS (1)
  - HAIR GROWTH ABNORMAL [None]
